FAERS Safety Report 6029829-3 (Version None)
Quarter: 2009Q1

REPORT INFORMATION
  Report Type: 
  Country: None (occurrence: None)
  Receive Date: 20090106
  Receipt Date: 20090106
  Transmission Date: 20090719
  Serious: Yes (Life-Threatening, Hospitalization)
  Sender: FDA-Public Use
  Company Number: None

PATIENT
  Age: 79 Year
  Sex: Female
  Weight: 58.9676 kg

DRUGS (2)
  1. ISOSORBIDE ER 30 MG - ETHEX CORP. [Suspect]
     Indication: ANGIOPLASTY
     Dosage: 30 MG 1 DAILY ORAL
     Route: 048
     Dates: start: 20040101, end: 20081123
  2. ISOSORBIDE ER 30 MG - ETHEX CORP. [Suspect]
     Indication: CARDIAC DISORDER
     Dosage: 30 MG 1 DAILY ORAL
     Route: 048
     Dates: start: 20040101, end: 20081123

REACTIONS (4)
  - BLOOD PRESSURE DECREASED [None]
  - DIZZINESS [None]
  - HEART RATE DECREASED [None]
  - PRESYNCOPE [None]
